FAERS Safety Report 5517621-5 (Version None)
Quarter: 2007Q4

REPORT INFORMATION
  Report Type: 
  Country: None (occurrence: None)
  Receive Date: 20071114
  Receipt Date: 20071105
  Transmission Date: 20080405
  Serious: Yes (Other)
  Sender: FDA-Public Use
  Company Number: DE-PFIZER INC-2007093745

PATIENT
  Sex: Male

DRUGS (2)
  1. SORTIS [Suspect]
     Indication: LIPIDS INCREASED
     Route: 048
  2. STATINS [Suspect]

REACTIONS (2)
  - INSOMNIA [None]
  - PHANTOM PAIN [None]
